FAERS Safety Report 8047865-2 (Version None)
Quarter: 2012Q1

REPORT INFORMATION
  Report Type: 
  Country: None (occurrence: None)
  Receive Date: 20120116
  Receipt Date: 20120104
  Transmission Date: 20120608
  Serious: Yes (Death)
  Sender: FDA-Public Use
  Company Number: US-COVIDIEN/TYCO HEALTHCARE/MALLINCKRODT-T201200040

PATIENT
  Age: 53 Year
  Sex: Female

DRUGS (8)
  1. TOLTERODINE TARTRATE [Suspect]
  2. OXYCODONE/ACETAMINOPHEN [Suspect]
  3. ALPRAZOLAM [Suspect]
  4. FENTANYL-100 [Suspect]
  5. ZOLPIDEM [Suspect]
  6. HYDROCODONE BITARTRATE AND ACETAMINOPHEN [Suspect]
  7. LEVOTHYROXINE SODIUM [Suspect]
  8. CARISOPRODOL [Suspect]

REACTIONS (1)
  - COMPLETED SUICIDE [None]
